FAERS Safety Report 7969126-X (Version None)
Quarter: 2011Q4

REPORT INFORMATION
  Report Type: 
  Country: None (occurrence: None)
  Receive Date: 20111209
  Receipt Date: 20111028
  Transmission Date: 20120403
  Serious: Yes (Hospitalization, Other)
  Sender: FDA-Public Use
  Company Number: US-ROCHE-1006963

PATIENT
  Sex: Male
  Weight: 76.7 kg

DRUGS (2)
  1. ZELBORAF [Suspect]
     Indication: MALIGNANT MELANOMA
     Route: 048
  2. ZELBORAF [Suspect]
     Route: 048

REACTIONS (6)
  - ALOPECIA [None]
  - CHEST DISCOMFORT [None]
  - ATRIAL FIBRILLATION [None]
  - ERYTHEMA [None]
  - PRURITUS [None]
  - ARTHRALGIA [None]
